FAERS Safety Report 19246501 (Version 1)
Quarter: 2021Q2

REPORT INFORMATION
  Report Type: Report from Study
  Country: AT (occurrence: AT)
  Receive Date: 20210512
  Receipt Date: 20210512
  Transmission Date: 20210717
  Serious: Yes (Life-Threatening, Hospitalization)
  Sender: FDA-Public Use
  Company Number: AT-CELGENEUS-AUT-20210501314

PATIENT
  Age: 76 Year
  Sex: Male
  Weight: 94 kg

DRUGS (9)
  1. PANTOPRAZOL [Concomitant]
     Active Substance: PANTOPRAZOLE SODIUM
     Indication: GASTROINTESTINAL DISORDER PROPHYLAXIS
     Dosage: 20 MG X 1 X 1 DAYS
     Route: 048
     Dates: start: 20210319
  2. ZOFRAN [Concomitant]
     Active Substance: ONDANSETRON HYDROCHLORIDE
     Indication: ANTIEMETIC SUPPORTIVE CARE
     Dosage: 8 MG X 1 X 1 DAYS
     Route: 048
     Dates: start: 20210316
  3. CIPRALEX [Concomitant]
     Active Substance: ESCITALOPRAM OXALATE
     Indication: DEPRESSED MOOD
     Dosage: 10 MG X 1 X 1 DAYS
     Route: 048
  4. XARELTO [Concomitant]
     Active Substance: RIVAROXABAN
     Indication: THROMBOSIS PROPHYLAXIS
     Dosage: 15 MG X 1 X 1 DAYS
     Route: 048
     Dates: start: 20210501
  5. NEUROBION [Concomitant]
     Active Substance: CYANOCOBALAMIN\PYRIDOXINE\THIAMINE
     Indication: VITAMIN SUPPLEMENTATION
     Dosage: 100 MG X 3 X 1 DAYS
     Route: 048
     Dates: start: 20210303
  6. FEDRATINIB [Suspect]
     Active Substance: FEDRATINIB
     Indication: MYELOFIBROSIS
     Dosage: 400 MG X 1 X 1 DAYS
     Route: 048
     Dates: start: 20210316, end: 20210413
  7. TRITTICO [Concomitant]
     Active Substance: TRAZODONE HYDROCHLORIDE
     Indication: DEPRESSED MOOD
     Dosage: 150 MG X 1 X 1 DAYS
     Route: 048
  8. UROSIN [Concomitant]
     Active Substance: ALLOPURINOL
     Indication: HYPERURICAEMIA
     Dosage: 100 MG X 1 X 1 DAYS
     Route: 048
     Dates: start: 20210123
  9. LOVENOX [Concomitant]
     Active Substance: ENOXAPARIN SODIUM
     Indication: THROMBOSIS PROPHYLAXIS
     Dosage: 40 MG X 1 X 1 DAYS
     Route: 058
     Dates: start: 20210413

REACTIONS (2)
  - Atrial fibrillation [Recovered/Resolved with Sequelae]
  - Cough [Recovered/Resolved]

NARRATIVE: CASE EVENT DATE: 20210413
